FAERS Safety Report 14258925 (Version 1)
Quarter: 2017Q4

REPORT INFORMATION
  Report Type: Spontaneous
  Country: US (occurrence: None)
  Receive Date: 20171207
  Receipt Date: 20171207
  Transmission Date: 20180321
  Serious: Yes (Other)
  Sender: FDA-Public Use
  Company Number: None

PATIENT
  Age: 68 Year
  Sex: Male
  Weight: 84 kg

DRUGS (2)
  1. ORITAVANCIN. [Suspect]
     Active Substance: ORITAVANCIN
     Indication: CELLULITIS
     Route: 042
     Dates: start: 20171020
  2. ORITAVANCIN. [Suspect]
     Active Substance: ORITAVANCIN
     Indication: ABSCESS LIMB
     Route: 042
     Dates: start: 20171020

REACTIONS (6)
  - Chills [None]
  - Tremor [None]
  - Infusion related reaction [None]
  - Palpitations [None]
  - Therapy cessation [None]
  - Back pain [None]

NARRATIVE: CASE EVENT DATE: 20171020
